FAERS Safety Report 4487428-9 (Version None)
Quarter: 2004Q4

REPORT INFORMATION
  Report Type: 
  Country: None (occurrence: None)
  Receive Date: 20041027
  Receipt Date: 20041001
  Transmission Date: 20050328
  Serious: Yes (Hospitalization)
  Sender: FDA-Public Use
  Company Number: BR-MERCK-0410BRA00020

PATIENT
  Age: 57 Year
  Sex: Male

DRUGS (16)
  1. ASPIRIN [Concomitant]
     Route: 048
  2. ETORICOXIB [Concomitant]
     Route: 048
  3. VIOXX [Suspect]
     Indication: RHEUMATOID ARTHRITIS
     Route: 048
     Dates: start: 20021101, end: 20040930
  4. VIOXX [Suspect]
     Route: 048
     Dates: start: 20021101, end: 20040930
  5. VIOXX [Suspect]
     Route: 048
     Dates: start: 20040101
  6. VIOXX [Suspect]
     Route: 048
     Dates: start: 20040101
  7. AMLODIPINE BESYLATE [Concomitant]
     Route: 048
  8. CYANOCOBALAMIN AND PYRIDOXINE AND THIAMINE [Concomitant]
     Route: 048
  9. PREDNISONE [Concomitant]
     Route: 048
  10. METHOTREXATE [Concomitant]
     Route: 048
  11. LEFLUNOMIDE [Concomitant]
     Route: 048
  12. HYDROXYCHLOROQUINE SULFATE [Concomitant]
     Route: 048
  13. BROMAZEPAM [Concomitant]
     Route: 048
  14. OMEPRAZOLE [Concomitant]
     Route: 048
  15. CALCIUM CARBONATE [Concomitant]
     Route: 048
  16. TERIPARATIDE [Concomitant]
     Route: 048

REACTIONS (3)
  - CEREBROVASCULAR ACCIDENT [None]
  - MEMORY IMPAIRMENT [None]
  - SPEECH DISORDER [None]
